FAERS Safety Report 14627392 (Version 2)
Quarter: 2018Q2

REPORT INFORMATION
  Report Type: Spontaneous
  Country: US (occurrence: US)
  Receive Date: 20180312
  Receipt Date: 20180530
  Transmission Date: 20180711
  Serious: Yes (Other)
  Sender: FDA-Public Use
  Company Number: US-BAYER-2018-042884

PATIENT
  Age: 65 Year
  Sex: Male

DRUGS (10)
  1. PREDNISONE. [Concomitant]
     Active Substance: PREDNISONE
  2. TRAMADOL. [Concomitant]
     Active Substance: TRAMADOL
     Dosage: 1 TABLET EVERY 6 HOURS
     Route: 048
  3. CASODEX [Concomitant]
     Active Substance: BICALUTAMIDE
     Dosage: 1 TABLET DAILY
     Route: 048
  4. XGEVA [Concomitant]
     Active Substance: DENOSUMAB
  5. XOFIGO [Suspect]
     Active Substance: RADIUM RA-223 DICHLORIDE
     Indication: BONE CANCER
     Dosage: UNK
     Dates: start: 20180316, end: 20180316
  6. TAMSULOSIN [Concomitant]
     Active Substance: TAMSULOSIN
     Dosage: 1 CAPSULE DAILY
     Route: 048
  7. VITAMIN D3 [Concomitant]
     Active Substance: CHOLECALCIFEROL
     Dosage: 1 CAPSULE DAILY
     Route: 048
  8. ELIGARD [Concomitant]
     Active Substance: LEUPROLIDE ACETATE
  9. ASPIRIN. [Concomitant]
     Active Substance: ASPIRIN
     Dosage: 1 TABLET DAILY
     Route: 048
  10. XOFIGO [Suspect]
     Active Substance: RADIUM RA-223 DICHLORIDE
     Indication: PROSTATE CANCER STAGE IV
     Dosage: UNK
     Dates: start: 20180413, end: 20180413

REACTIONS (3)
  - Bone pain [Recovering/Resolving]
  - Metastases to spine [None]
  - Metastases to bone [None]
